FAERS Safety Report 18771150 (Version 3)
Quarter: 2021Q3

REPORT INFORMATION
  Report Type: Report from Study
  Country: None (occurrence: US)
  Receive Date: 20210122
  Receipt Date: 20210910
  Transmission Date: 20211014
  Serious: Yes (Hospitalization, Other)
  Sender: FDA-Public Use
  Company Number: US-ABBVIE-19K-163-2846898-00

PATIENT
  Age: 74 Year
  Sex: Female
  Weight: 80.36 kg

DRUGS (11)
  1. CITALOPRAM [Concomitant]
     Active Substance: CITALOPRAM HYDROBROMIDE
     Indication: ANXIETY
  2. VITAMIN C + ZINK [Concomitant]
     Indication: VITAMIN C DEFICIENCY
  3. HUMIRA [Suspect]
     Active Substance: ADALIMUMAB
     Indication: PSORIASIS
     Route: 058
     Dates: start: 2018, end: 2019
  4. VITAMIN D [Concomitant]
     Active Substance: VITAMIN D NOS
     Indication: SUPPLEMENTATION THERAPY
  5. OXYCODONE [Suspect]
     Active Substance: OXYCODONE
     Indication: SURGERY
     Route: 065
  6. METOPROLOL. [Concomitant]
     Active Substance: METOPROLOL
     Indication: CARDIAC DISORDER
  7. COVID?19 VACCINE [Concomitant]
     Indication: COVID-19 IMMUNISATION
     Dosage: JOHNSON AND JOHNSON
     Route: 030
     Dates: start: 202107, end: 202107
  8. SIMVASTATIN. [Concomitant]
     Active Substance: SIMVASTATIN
     Indication: BLOOD CHOLESTEROL
  9. CITALOPRAM [Concomitant]
     Active Substance: CITALOPRAM HYDROBROMIDE
     Indication: NERVOUS SYSTEM DISORDER
  10. LEVOTHYROXINE. [Concomitant]
     Active Substance: LEVOTHYROXINE
     Indication: THYROID DISORDER
  11. STATIN [Concomitant]
     Active Substance: UNSPECIFIED INGREDIENT
     Indication: BLOOD CHOLESTEROL ABNORMAL

REACTIONS (19)
  - Post procedural complication [Unknown]
  - Psoriasis [Unknown]
  - Atrial fibrillation [Not Recovered/Not Resolved]
  - Injection site pain [Unknown]
  - Herpes zoster [Recovered/Resolved]
  - Weight increased [Not Recovered/Not Resolved]
  - Illness [Recovered/Resolved]
  - Lung carcinoma cell type unspecified stage II [Recovered/Resolved]
  - Overdose [Recovering/Resolving]
  - Condition aggravated [Recovering/Resolving]
  - Drug hypersensitivity [Unknown]
  - Thrombosis [Not Recovered/Not Resolved]
  - Nausea [Unknown]
  - Spleen disorder [Unknown]
  - Splenic thrombosis [Recovered/Resolved]
  - Lung carcinoma cell type unspecified stage I [Recovered/Resolved]
  - Dizziness [Recovered/Resolved]
  - Atrial fibrillation [Recovered/Resolved]
  - Contusion [Unknown]

NARRATIVE: CASE EVENT DATE: 2019
